FAERS Safety Report 21375742 (Version 1)
Quarter: 2022Q3

REPORT INFORMATION
  Report Type: Spontaneous
  Country: DE (occurrence: DE)
  Receive Date: 20220926
  Receipt Date: 20220926
  Transmission Date: 20221026
  Serious: Yes (Other)
  Sender: FDA-Public Use
  Company Number: None

PATIENT
  Age: 76 Year
  Sex: Male

DRUGS (5)
  1. LOPERAMIDE [Suspect]
     Active Substance: LOPERAMIDE
     Indication: Diarrhoea
     Route: 048
     Dates: start: 20220703, end: 20220704
  2. MARCUMAR [Suspect]
     Active Substance: PHENPROCOUMON
     Indication: Thrombosis prophylaxis
     Dosage: 0,5-1 / DAY
     Route: 048
     Dates: start: 2015
  3. TADALAFIL [Concomitant]
     Active Substance: TADALAFIL
     Dosage: SOMETIMES
  4. DICLOFENAC [Concomitant]
     Active Substance: DICLOFENAC
     Dosage: FOR AT LEAST 2 YEARS
  5. PANTOPRAZOLE SODIUM [Concomitant]
     Active Substance: PANTOPRAZOLE SODIUM

REACTIONS (1)
  - International normalised ratio increased [Recovered/Resolved]

NARRATIVE: CASE EVENT DATE: 20220704
